FAERS Safety Report 8351283-7 (Version None)
Quarter: 2012Q2

REPORT INFORMATION
  Report Type: 
  Country: None (occurrence: None)
  Receive Date: 20120510
  Receipt Date: 20110527
  Transmission Date: 20120825
  Serious: No
  Sender: FDA-Public Use
  Company Number: US-TEVA-2011002670

PATIENT
  Sex: Male
  Weight: 102.15 kg

DRUGS (11)
  1. HYDROCORTISONE [Concomitant]
     Dates: start: 20051001
  2. DICYCLOMINE [Concomitant]
     Dates: start: 19890101
  3. LEVOTHYROXINE SODIUM [Concomitant]
     Dates: start: 20050101
  4. NUVIGIL [Suspect]
     Indication: SLEEP APNOEA SYNDROME
     Dosage: 150 MILLIGRAM;
     Route: 048
     Dates: start: 20110521
  5. PRAVASTATIN [Concomitant]
  6. NEXIUM [Concomitant]
     Dates: start: 20050101
  7. CYMBALTA [Concomitant]
     Dates: start: 20090801
  8. CELEBREX [Concomitant]
  9. DEPO-TESTOSTERONE [Concomitant]
     Dates: start: 20100701
  10. NIACIN [Concomitant]
  11. NORDATROPIN [Concomitant]
     Dates: start: 20051101

REACTIONS (1)
  - DRUG INEFFECTIVE [None]
